FAERS Safety Report 20867401 (Version 1)
Quarter: 2022Q2

REPORT INFORMATION
  Report Type: Spontaneous
  Country: US (occurrence: None)
  Receive Date: 20220524
  Receipt Date: 20220524
  Transmission Date: 20220721
  Serious: Yes (Hospitalization)
  Sender: FDA-Public Use
  Company Number: None

PATIENT
  Sex: Male
  Weight: 91.53 kg

DRUGS (6)
  1. DEXAMETHASONE [Suspect]
     Active Substance: DEXAMETHASONE
     Dates: end: 20220511
  2. DARATUMUMAB\HYALURONIDASE-FIHJ [Suspect]
     Active Substance: DARATUMUMAB\HYALURONIDASE-FIHJ
     Dates: end: 20220511
  3. LENALIDOMIDE [Suspect]
     Active Substance: LENALIDOMIDE
     Dates: end: 20220511
  4. APIXABAN [Concomitant]
     Active Substance: APIXABAN
  5. ASPIRIN [Concomitant]
     Active Substance: ASPIRIN
  6. METOPROLOL [Concomitant]

REACTIONS (16)
  - Fall [None]
  - Head injury [None]
  - Loss of consciousness [None]
  - Oxygen saturation decreased [None]
  - Subarachnoid haemorrhage [None]
  - Infection [None]
  - Skull fracture [None]
  - Rib fracture [None]
  - Peripheral swelling [None]
  - Thoracic vertebral fracture [None]
  - Pyrexia [None]
  - Feeling hot [None]
  - Staphylococcal sepsis [None]
  - Ejection fraction decreased [None]
  - Cellulitis [None]
  - Atrial fibrillation [None]

NARRATIVE: CASE EVENT DATE: 20220512
